FAERS Safety Report 6155518-0 (Version None)
Quarter: 2009Q2

REPORT INFORMATION
  Report Type: 
  Country: None (occurrence: None)
  Receive Date: 20090415
  Receipt Date: 20090407
  Transmission Date: 20091009
  Serious: No
  Sender: FDA-Public Use
  Company Number: US-JNJFOC-20090402218

PATIENT
  Sex: Female
  Weight: 83.46 kg

DRUGS (4)
  1. FENTANYL TRANSDERMAL SYSTEM [Suspect]
     Indication: CANCER PAIN
     Route: 062
  2. DEMEROL [Concomitant]
     Indication: PAIN
     Route: 048
  3. PHENERGAN [Concomitant]
     Dosage: USED WITH DEMEROL
     Route: 048
  4. XANAX [Concomitant]
     Indication: ANXIETY
     Route: 048

REACTIONS (5)
  - DYSSTASIA [None]
  - MALAISE [None]
  - NAUSEA [None]
  - TREATMENT NONCOMPLIANCE [None]
  - WRONG TECHNIQUE IN DRUG USAGE PROCESS [None]
